FAERS Safety Report 13981317 (Version 1)
Quarter: 2017Q3

REPORT INFORMATION
  Report Type: Spontaneous
  Country: US (occurrence: US)
  Receive Date: 20170915
  Receipt Date: 20170915
  Transmission Date: 20171128
  Serious: Yes (Other)
  Sender: FDA-Public Use
  Company Number: None

PATIENT
  Age: 50 Year
  Sex: Male

DRUGS (1)
  1. ACTEMRA [Suspect]
     Active Substance: TOCILIZUMAB
     Indication: RHEUMATOID ARTHRITIS
     Dosage: ?          OTHER FREQUENCY:EVERY 2 WEEKS;?
     Route: 058
     Dates: start: 20170626, end: 20170915

REACTIONS (5)
  - Diarrhoea [None]
  - Abdominal pain [None]
  - Muscle spasms [None]
  - Feeling abnormal [None]
  - Irritable bowel syndrome [None]

NARRATIVE: CASE EVENT DATE: 20170915
